FAERS Safety Report 20643166 (Version 1)
Quarter: 2022Q1

REPORT INFORMATION
  Report Type: Spontaneous
  Country: CA (occurrence: CA)
  Receive Date: 20220328
  Receipt Date: 20220328
  Transmission Date: 20220423
  Serious: Yes (Other)
  Sender: FDA-Public Use
  Company Number: CA-JNJFOC-20220352347

PATIENT
  Age: 68 Year
  Sex: Female
  Weight: 83 kg

DRUGS (1)
  1. REMICADE [Suspect]
     Active Substance: INFLIXIMAB
     Indication: Crohn^s disease
     Route: 042

REACTIONS (5)
  - Chest discomfort [Recovered/Resolved]
  - Palpitations [Recovered/Resolved]
  - Neck pain [Recovered/Resolved]
  - Blood pressure increased [Recovered/Resolved]
  - Pain in extremity [Recovered/Resolved]
